FAERS Safety Report 6626247-1 (Version None)
Quarter: 2010Q1

REPORT INFORMATION
  Report Type: 
  Country: None (occurrence: None)
  Receive Date: 20100310
  Receipt Date: 20100227
  Transmission Date: 20100710
  Serious: Yes (Other)
  Sender: FDA-Public Use
  Company Number: US-BAYER-201015273NA

PATIENT
  Age: 41 Year
  Sex: Female

DRUGS (7)
  1. BETASERON [Suspect]
     Indication: MULTIPLE SCLEROSIS
     Dosage: TOTAL DAILY DOSE: 8 MIU
     Route: 058
     Dates: start: 20090305
  2. PROVIGIL [Concomitant]
  3. EFFEXOR [Concomitant]
  4. OXYBUTYNIN [Concomitant]
  5. SONATA [Concomitant]
  6. ROPINIROLE [Concomitant]
  7. EXTRA STRENGTH TYLENOL [Concomitant]

REACTIONS (3)
  - CARDIAC HYPERTROPHY [None]
  - CHEST DISCOMFORT [None]
  - LIVER FUNCTION TEST ABNORMAL [None]
